FAERS Safety Report 17429774 (Version 2)
Quarter: 2020Q1

REPORT INFORMATION
  Report Type: Spontaneous
  Country: US (occurrence: US)
  Receive Date: 20200218
  Receipt Date: 20200226
  Transmission Date: 20200409
  Serious: No
  Sender: FDA-Public Use
  Company Number: US-PFIZER INC-2020064768

PATIENT
  Age: 67 Year
  Sex: Female
  Weight: 81.19 kg

DRUGS (1)
  1. ESTRING [Suspect]
     Active Substance: ESTRADIOL
     Indication: VULVOVAGINAL INFLAMMATION
     Dosage: UNK, CHANGED EVERY 90 DAYS
     Dates: end: 2019

REACTIONS (3)
  - Abdominal pain upper [Recovering/Resolving]
  - Drug ineffective for unapproved indication [Unknown]
  - Off label use [Unknown]
